FAERS Safety Report 26123217 (Version 1)
Quarter: 2025Q4

REPORT INFORMATION
  Report Type: Spontaneous
  Country: None (occurrence: GB)
  Receive Date: 20251204
  Receipt Date: 20251204
  Transmission Date: 20260118
  Serious: Yes (Other)
  Sender: AURINIA PHARMACEUTICALS
  Company Number: GB-MMM-Otsuka-4HSFJ6TW

PATIENT

DRUGS (1)
  1. LUPKYNIS [Suspect]
     Active Substance: VOCLOSPORIN
     Indication: Product used for unknown indication
     Dosage: DURATION NUMBER: 6 DURATION UNIT: MONTHS
     Route: 065

REACTIONS (3)
  - Renal tubular disorder [Unknown]
  - Renal vessel disorder [Unknown]
  - Toxicity to various agents [Unknown]
